FAERS Safety Report 5531130-9 (Version None)
Quarter: 2007Q4

REPORT INFORMATION
  Report Type: 
  Country: None (occurrence: None)
  Receive Date: 20071130
  Receipt Date: 20071121
  Transmission Date: 20080405
  Serious: Yes (Other)
  Sender: FDA-Public Use
  Company Number: JP-PFIZER INC-2007098691

PATIENT
  Age: 26 Year
  Sex: Female

DRUGS (3)
  1. SOLU-MEDROL [Suspect]
     Indication: LYMPHOCYTIC HYPOPHYSITIS
     Route: 042
  2. DESMOPRESSIN ACETATE [Concomitant]
  3. LEVOTHYROXINE SODIUM [Concomitant]

REACTIONS (2)
  - HYPERGLYCAEMIA [None]
  - HYPERNATRAEMIA [None]
